FAERS Safety Report 16650311 (Version 1)
Quarter: 2019Q3

REPORT INFORMATION
  Report Type: Spontaneous
  Country: US (occurrence: US)
  Receive Date: 20190731
  Receipt Date: 20190731
  Transmission Date: 20191004
  Serious: No
  Sender: FDA-Public Use
  Company Number: US-AMGEN-USASP2019120060

PATIENT
  Age: 54 Year
  Sex: Female

DRUGS (18)
  1. LISINOPRIL. [Concomitant]
     Active Substance: LISINOPRIL
     Dosage: 40 MILLIGRAM
  2. VIT D [Concomitant]
     Active Substance: VITAMIN D NOS
     Dosage: 2000 UNITS
  3. FOLIC ACID. [Concomitant]
     Active Substance: FOLIC ACID
     Dosage: 800 MICROGRAM
  4. TYLENOL [Concomitant]
     Active Substance: ACETAMINOPHEN
     Dosage: 300-30 MILLIGRAM
  5. ATORVASTATIN [Concomitant]
     Active Substance: ATORVASTATIN
     Dosage: 80 MILLIGRAM
  6. CLARITIN [Concomitant]
     Active Substance: LORATADINE
     Dosage: 10 MILLIGRAM
  7. FAMOTIDINE. [Concomitant]
     Active Substance: FAMOTIDINE
     Dosage: 40 MILLIGRAM
  8. FISH OIL [Concomitant]
     Active Substance: FISH OIL
     Dosage: 1360 MILLIGRAM
  9. FLAXSEED [Concomitant]
     Active Substance: FLAX SEED
     Dosage: 1300 MILLIGRAM
  10. GARLIC [ALLIUM SATIVUM] [Concomitant]
     Active Substance: GARLIC
     Dosage: 2000 MILLIGRAM
  11. LEVOTHYROXIN [Concomitant]
     Active Substance: LEVOTHYROXINE
     Dosage: 300 MICROGRAM
  12. ENBREL [Suspect]
     Active Substance: ETANERCEPT
     Indication: RHEUMATOID ARTHRITIS
     Dosage: UNK
     Route: 065
  13. ADVAIR HFA [Concomitant]
     Active Substance: FLUTICASONE PROPIONATE\SALMETEROL XINAFOATE
     Dosage: 500-50MC
  14. ALLERGY EYES [Concomitant]
     Dosage: UNK
  15. VERAPAMIL HCL [Concomitant]
     Active Substance: VERAPAMIL HYDROCHLORIDE
     Dosage: 120 MILLIGRAM
  16. METFORMIN HCL [Concomitant]
     Active Substance: METFORMIN HYDROCHLORIDE
     Dosage: 1000 MILLIGRAM
  17. TRAMADOL HCL [Concomitant]
     Active Substance: TRAMADOL HYDROCHLORIDE
     Dosage: 50 MILLIGRAM
  18. METHOTREXATE. [Concomitant]
     Active Substance: METHOTREXATE
     Dosage: 2.5 MILLIGRAM

REACTIONS (3)
  - Injection site erythema [Unknown]
  - Pyrexia [Unknown]
  - Injection site warmth [Unknown]
